FAERS Safety Report 7719405-6 (Version None)
Quarter: 2011Q3

REPORT INFORMATION
  Report Type: 
  Country: None (occurrence: None)
  Receive Date: 20110830
  Receipt Date: 20110824
  Transmission Date: 20111222
  Serious: Yes (Hospitalization, Other)
  Sender: FDA-Public Use
  Company Number: DK-TEVA-297272ISR

PATIENT
  Sex: Female

DRUGS (2)
  1. NILOTINIB [Interacting]
  2. SIMAVASTATIN [Suspect]

REACTIONS (3)
  - CARDIAC FAILURE [None]
  - FLUID RETENTION [None]
  - DRUG INTERACTION [None]
